FAERS Safety Report 23347511 (Version 1)
Quarter: 2023Q4

REPORT INFORMATION
  Report Type: Spontaneous
  Country: US (occurrence: None)
  Receive Date: 20231227
  Receipt Date: 20231227
  Transmission Date: 20240109
  Serious: No
  Sender: FDA-Public Use
  Company Number: None

PATIENT

DRUGS (2)
  1. ETOMIDATE [Suspect]
     Active Substance: ETOMIDATE
     Route: 042
  2. PANTOPRAZOLE SODIUM [Suspect]
     Active Substance: PANTOPRAZOLE SODIUM
     Route: 042

REACTIONS (6)
  - Wrong product stored [None]
  - Product packaging confusion [None]
  - Product label confusion [None]
  - Intercepted medication error [None]
  - Product availability issue [None]
  - Circumstance or information capable of leading to medication error [None]
